FAERS Safety Report 22971843 (Version 2)
Quarter: 2024Q1

REPORT INFORMATION
  Report Type: Report from Study
  Country: US (occurrence: US)
  Receive Date: 20230922
  Receipt Date: 20240226
  Transmission Date: 20240410
  Serious: Yes (Hospitalization)
  Sender: FDA-Public Use
  Company Number: US-SA-SAC20230920000681

PATIENT
  Age: 11 Year
  Sex: Male

DRUGS (2)
  1. DUPILUMAB [Suspect]
     Active Substance: DUPILUMAB
     Indication: Dermatitis atopic
     Dosage: 400MG, 1X
     Route: 058
     Dates: start: 20230801, end: 20230801
  2. DUPILUMAB [Suspect]
     Active Substance: DUPILUMAB
     Dosage: 200MG, QOW
     Route: 058
     Dates: start: 202308

REACTIONS (3)
  - Dermatitis atopic [Unknown]
  - Headache [Recovered/Resolved]
  - Eye pruritus [Unknown]

NARRATIVE: CASE EVENT DATE: 20230901
